FAERS Safety Report 18958157 (Version 1)
Quarter: 2021Q1

REPORT INFORMATION
  Report Type: Report from Study
  Country: ES (occurrence: ES)
  Receive Date: 20210302
  Receipt Date: 20210302
  Transmission Date: 20210420
  Serious: Yes (Other)
  Sender: FDA-Public Use
  Company Number: ES-MYLANLABS-2021M1012221

PATIENT

DRUGS (14)
  1. CARBOPLATIN. [Concomitant]
     Active Substance: CARBOPLATIN
     Indication: RETINOBLASTOMA
     Dosage: SYSTEMIC CHEMOTHERAPY; CARBOPLATIN ON DAY 1 OF A 21?DAY CYCLE
     Route: 065
  2. CARBOPLATIN. [Concomitant]
     Active Substance: CARBOPLATIN
     Indication: VITREOUS DISORDER
  3. MELPHALAN. [Concomitant]
     Active Substance: MELPHALAN
     Indication: RETINOBLASTOMA
     Dosage: SELECTIVE CHEMOTHERAPY
     Route: 013
  4. TOBRAMYCIN. [Concomitant]
     Active Substance: TOBRAMYCIN
     Indication: PRODUCT USED FOR UNKNOWN INDICATION
     Dosage: EYE DROPS FOUR TIMES PER DAY FOR ONE WEEK AFTER EVERY CYCLE OF INTRAVITREAL MELPHALAN THERAPY
     Route: 031
  5. DEXAMETHASONE. [Concomitant]
     Active Substance: DEXAMETHASONE
     Indication: PRODUCT USED FOR UNKNOWN INDICATION
     Route: 065
  6. VINCRISTINE [Concomitant]
     Active Substance: VINCRISTINE
     Indication: RETINOBLASTOMA
     Dosage: SYSTEMIC CHEMOTHERAPY
     Route: 065
  7. MELPHALAN. [Suspect]
     Active Substance: MELPHALAN
     Indication: RETINOBLASTOMA
     Dosage: 30 MICROGRAM, QW 0.09ML(30 MCG) WAS INJECTED INTO THE VITREOUS
  8. VINCRISTINE [Concomitant]
     Active Substance: VINCRISTINE
     Indication: VITREOUS DISORDER
  9. ETOPOSIDE. [Concomitant]
     Active Substance: ETOPOSIDE
     Indication: VITREOUS DISORDER
  10. MELPHALAN. [Suspect]
     Active Substance: MELPHALAN
     Indication: VITREOUS DISORDER
  11. POVIDONE?IODINE. [Concomitant]
     Active Substance: POVIDONE-IODINE
     Indication: INFECTION PROPHYLAXIS
     Route: 065
  12. MELPHALAN. [Concomitant]
     Active Substance: MELPHALAN
     Indication: VITREOUS DISORDER
  13. SALINE                             /00075401/ [Concomitant]
     Active Substance: SODIUM CHLORIDE
     Indication: VEHICLE SOLUTION USE
     Dosage: 0.3 MILLILITER
  14. ETOPOSIDE. [Concomitant]
     Active Substance: ETOPOSIDE
     Indication: RETINOBLASTOMA
     Dosage: 3.3 MILLIGRAM/KILOGRAM, CYCLE SYSTEMIC CHEMOTHERAPY; ETOPOSIDE ON DAYS 1, 2, AND 3 OF A 21?DAY CYCLE
     Route: 065

REACTIONS (2)
  - Administration site scar [Unknown]
  - Off label use [Unknown]
